FAERS Safety Report 24528189 (Version 2)
Quarter: 2025Q1

REPORT INFORMATION
  Report Type: Report from Study
  Country: US (occurrence: US)
  Receive Date: 20241021
  Receipt Date: 20250114
  Transmission Date: 20250408
  Serious: Yes (Hospitalization)
  Sender: ABBVIE
  Company Number: US-ABBVIE-5970002

PATIENT
  Age: 60 Year
  Sex: Female
  Weight: 77.11 kg

DRUGS (1)
  1. RINVOQ [Suspect]
     Active Substance: UPADACITINIB
     Indication: Neurodermatitis
     Dosage: 1 TABLET WITH FOOD
     Route: 048

REACTIONS (3)
  - Pulmonary thrombosis [Recovered/Resolved]
  - Pneumonia [Recovered/Resolved]
  - Skin warm [Unknown]

NARRATIVE: CASE EVENT DATE: 20240921
